FAERS Safety Report 16822613 (Version 2)
Quarter: 2019Q4

REPORT INFORMATION
  Report Type: Spontaneous
  Country: US (occurrence: US)
  Receive Date: 20190918
  Receipt Date: 20191119
  Transmission Date: 20200122
  Serious: Yes (Other)
  Sender: FDA-Public Use
  Company Number: US-PFIZER INC-2019402317

PATIENT
  Age: 78 Year
  Sex: Female
  Weight: 81.63 kg

DRUGS (4)
  1. GABAPENTIN. [Concomitant]
     Active Substance: GABAPENTIN
     Dosage: 400 MG, 1X/DAY
  2. XELJANZ XR [Suspect]
     Active Substance: TOFACITINIB CITRATE
     Indication: RHEUMATOID ARTHRITIS
     Dosage: 11 MG, DAILY
  3. HYDROCODONE/ACETAMINOPHEN [Concomitant]
     Active Substance: ACETAMINOPHEN\HYDROCODONE
     Dosage: 1 DF, 4X/DAY (1 TAB EVERY 6 HRS)
  4. OMEPRAZOLE. [Concomitant]
     Active Substance: OMEPRAZOLE
     Dosage: 400 MG, 2X/DAY

REACTIONS (6)
  - Mental impairment [Unknown]
  - Musculoskeletal disorder [Unknown]
  - Memory impairment [Unknown]
  - Head discomfort [Unknown]
  - Dizziness [Not Recovered/Not Resolved]
  - Vision blurred [Unknown]
